FAERS Safety Report 6893784-4 (Version None)
Quarter: 2010Q3

REPORT INFORMATION
  Report Type: 
  Country: None (occurrence: None)
  Receive Date: 20100802
  Receipt Date: 20100722
  Transmission Date: 20110219
  Serious: Yes (Hospitalization)
  Sender: FDA-Public Use
  Company Number: US-BIOGENIDEC-2010BI019737

PATIENT
  Age: 56 Year
  Sex: Female

DRUGS (3)
  1. AVONEX [Suspect]
     Indication: MULTIPLE SCLEROSIS
     Route: 030
     Dates: start: 20050412
  2. SULFA [Concomitant]
  3. AMPYRA [Concomitant]
     Indication: GAIT DISTURBANCE
     Dates: start: 20100601, end: 20100601

REACTIONS (4)
  - CLOSTRIDIAL INFECTION [None]
  - CROHN'S DISEASE [None]
  - HAEMORRHAGE [None]
  - HYPERCOAGULATION [None]
